FAERS Safety Report 18960846 (Version 1)
Quarter: 2021Q1

REPORT INFORMATION
  Report Type: Spontaneous
  Country: JP (occurrence: JP)
  Receive Date: 20210302
  Receipt Date: 20210302
  Transmission Date: 20210420
  Serious: Yes (Other)
  Sender: FDA-Public Use
  Company Number: JP-FERRINGPH-2021FE01267

PATIENT
  Age: 78 Year
  Sex: Male

DRUGS (2)
  1. GONAX [Suspect]
     Active Substance: DEGARELIX
     Indication: PRODUCT USED FOR UNKNOWN INDICATION
     Route: 058
  2. XTANDI [Suspect]
     Active Substance: ENZALUTAMIDE
     Indication: PRODUCT USED FOR UNKNOWN INDICATION
     Dosage: 80 MG, 1 TIME DAILY
     Route: 048
     Dates: end: 20210201

REACTIONS (9)
  - Immobile [Unknown]
  - Feeling abnormal [Unknown]
  - Physical deconditioning [Unknown]
  - Thirst [Unknown]
  - Injection site pain [Unknown]
  - Injection site swelling [Unknown]
  - Injection site induration [Recovering/Resolving]
  - Malaise [Recovered/Resolved]
  - Gastrectomy [Unknown]
